FAERS Safety Report 12615697 (Version 3)
Quarter: 2020Q1

REPORT INFORMATION
  Report Type: Spontaneous
  Country: US (occurrence: US)
  Receive Date: 20160802
  Receipt Date: 20200303
  Transmission Date: 20200409
  Serious: No
  Sender: FDA-Public Use
  Company Number: US-IMPAX LABORATORIES, INC-2016-IPXL-00629

PATIENT
  Sex: Female

DRUGS (2)
  1. RYTARY [Suspect]
     Active Substance: CARBIDOPA\LEVODOPA
     Indication: PARKINSON^S DISEASE
     Dosage: 48.75/195 MG, 3 DOSAGE FORM, 6 /DAY
     Route: 048
  2. RYTARY [Suspect]
     Active Substance: CARBIDOPA\LEVODOPA
     Dosage: 48.75/195 MG, 3 DOSAGE FORM, 3 /DAY
     Route: 065

REACTIONS (5)
  - Prescribed overdose [Unknown]
  - Product dose omission [Unknown]
  - Dysstasia [Unknown]
  - Motor dysfunction [Unknown]
  - Therapeutic response shortened [Unknown]
